FAERS Safety Report 4822479-3 (Version None)
Quarter: 2005Q4

REPORT INFORMATION
  Report Type: 
  Country: None (occurrence: None)
  Receive Date: 20051104
  Receipt Date: 20051021
  Transmission Date: 20060501
  Serious: Yes (Hospitalization)
  Sender: FDA-Public Use
  Company Number: 2005-04067

PATIENT
  Age: 85 Year
  Sex: Female

DRUGS (1)
  1. KENTERA (WATSON LABORATORIES)(OXYBUTYNIN) TRANSDERMAL PATCH, 3.9MG [Suspect]
     Indication: URGE INCONTINENCE
     Dosage: 3.9 MG, DAILY, TRANSDERMAL
     Route: 062
     Dates: start: 20050613

REACTIONS (2)
  - CONDITION AGGRAVATED [None]
  - PERICARDIAL EFFUSION [None]
